FAERS Safety Report 23170128 (Version 1)
Quarter: 2023Q4

REPORT INFORMATION
  Report Type: Spontaneous
  Country: DE (occurrence: DE)
  Receive Date: 20231110
  Receipt Date: 20231110
  Transmission Date: 20240109
  Serious: Yes (Hospitalization)
  Sender: FDA-Public Use
  Company Number: DE-002147023-NVSC2023DE109655

PATIENT
  Age: 55 Year
  Sex: Male
  Weight: 83.4 kg

DRUGS (18)
  1. CETIRIZINE [Suspect]
     Active Substance: CETIRIZINE HYDROCHLORIDE
     Indication: Product used for unknown indication
     Dosage: UNK
  2. NISEVOKITUG [Suspect]
     Active Substance: NISEVOKITUG
     Indication: Pancreatic carcinoma metastatic
     Dosage: CODE NOT BROKEN
     Route: 042
     Dates: start: 20230306
  3. PACLITAXEL [Suspect]
     Active Substance: PACLITAXEL
     Indication: Pancreatic carcinoma metastatic
     Dosage: 251.25 MG, OTHER
     Route: 042
     Dates: start: 20230321
  4. PACLITAXEL [Suspect]
     Active Substance: PACLITAXEL
     Dosage: 250 MG, OTHER
     Dates: start: 20230306, end: 20230306
  5. GEMCITABINE HYDROCHLORIDE [Suspect]
     Active Substance: GEMCITABINE HYDROCHLORIDE
     Indication: Pancreatic carcinoma metastatic
     Dosage: 2000 MG, OTHER
     Route: 042
     Dates: start: 20230306, end: 20230306
  6. GEMCITABINE HYDROCHLORIDE [Suspect]
     Active Substance: GEMCITABINE HYDROCHLORIDE
     Dosage: 2010 MG, OTHER
     Route: 042
     Dates: start: 20230321
  7. PANTOPRAZOLE [Concomitant]
     Active Substance: PANTOPRAZOLE
     Indication: Gastritis prophylaxis
     Dosage: UNK
     Dates: end: 20230312
  8. ACETAMINOPHEN [Concomitant]
     Active Substance: ACETAMINOPHEN
     Indication: Abdominal pain
     Dosage: UNK (STRENGTH- 500, 75, 1000 MG)
     Dates: start: 20230220, end: 20230312
  9. MOVICOL [Concomitant]
     Active Substance: POLYETHYLENE GLYCOL 3350\POTASSIUM CHLORIDE\SODIUM BICARBONATE\SODIUM CHLORIDE
     Indication: Constipation prophylaxis
     Dosage: UNK
     Dates: start: 20230223, end: 20230315
  10. ZOFRAN [Concomitant]
     Active Substance: ONDANSETRON HYDROCHLORIDE
     Indication: Prophylaxis of nausea and vomiting
     Dosage: UNK
     Dates: start: 20230306
  11. ENOXAPARIN SODIUM [Concomitant]
     Active Substance: ENOXAPARIN SODIUM
     Indication: Thrombosis prophylaxis
     Dosage: UNK (STRENGHT- 60, 80, 20, 100)
     Dates: start: 20230222, end: 20230222
  12. POTASSIUM CITRATE [Concomitant]
     Active Substance: POTASSIUM CITRATE
     Indication: Hypokalaemia
     Dosage: UNK
     Dates: start: 20230222, end: 20230224
  13. HYDROMORPHONE [Concomitant]
     Active Substance: HYDROMORPHONE
     Indication: Abdominal pain
     Dosage: UNK (STRENGHT- 2, 2.6, 1.3, 100, 108, 4, 16)
     Dates: start: 20230223, end: 20230225
  14. LOPERAMIDE [Concomitant]
     Active Substance: LOPERAMIDE
     Indication: Prophylaxis against diarrhoea
     Dosage: UNK
     Dates: start: 20230306
  15. AKYNZEO [Concomitant]
     Indication: Prophylaxis of nausea and vomiting
     Dosage: UNK
     Dates: start: 20230306
  16. PIRITRAMIDE [Concomitant]
     Active Substance: PIRITRAMIDE
     Indication: Abdominal pain
     Dosage: UNK
     Dates: start: 20230218, end: 20230222
  17. LORAZEPAM [Concomitant]
     Active Substance: LORAZEPAM
     Indication: Insomnia
     Dosage: UNK
     Dates: start: 20230311, end: 20230312
  18. DEXAMETHASONE [Concomitant]
     Active Substance: DEXAMETHASONE
     Indication: Chemotherapy side effect prophylaxis
     Dosage: UNK (STRENGTH- 5, 4, 1.5)
     Dates: start: 20230306

REACTIONS (2)
  - Gastrooesophageal reflux disease [Recovered/Resolved]
  - Fatigue [Unknown]

NARRATIVE: CASE EVENT DATE: 20230311
